FAERS Safety Report 5369443-6 (Version None)
Quarter: 2007Q2

REPORT INFORMATION
  Report Type: 
  Country: None (occurrence: None)
  Receive Date: 20070625
  Receipt Date: 20070611
  Transmission Date: 20071010
  Serious: Yes (Other)
  Sender: FDA-Public Use
  Company Number: US-ELI_LILLY_AND_COMPANY-US200602000238

PATIENT
  Age: 46 Year
  Sex: Male
  Weight: 102.04 kg

DRUGS (15)
  1. WELLBUTRIN [Concomitant]
     Dosage: 150 MG, UNK
     Dates: start: 20020520
  2. WELLBUTRIN [Concomitant]
     Dosage: 100 MG, 3/D
  3. PAXIL [Concomitant]
     Dosage: 60 MG, DAILY (1/D)
  4. PREVACID [Concomitant]
     Dosage: 30 MG, DAILY (1/D)
     Dates: start: 20000201
  5. UNIPHYL [Concomitant]
     Dosage: 400 MG, DAILY (1/D)
     Dates: end: 20020920
  6. ALBUTEROL [Concomitant]
     Indication: ASTHMA
     Dosage: UNK, AS NEEDED
  7. FLOVENT [Concomitant]
     Indication: ASTHMA
     Dosage: 2 UNK, 2/D
     Route: 055
  8. SEREVENT [Concomitant]
     Indication: ASTHMA
     Dosage: 2 UNK, 2/D
     Route: 055
  9. SINGULAIR [Concomitant]
     Indication: ASTHMA
     Dosage: 10 MG, DAILY (1/D)
     Route: 048
     Dates: start: 19991014
  10. PROTONIX [Concomitant]
     Dosage: 40 MG, DAILY (1/D)
     Dates: start: 20020205
  11. TRAZODONE HCL [Concomitant]
     Dosage: 100 MG, AS NEEDED
     Dates: start: 20020520
  12. ASPIRIN [Concomitant]
     Dosage: 325 MG, DAILY (1/D)
  13. PROZAC [Concomitant]
     Dosage: 20 MG, DAILY (1/D)
     Dates: start: 20020520
  14. PROZAC [Concomitant]
     Dosage: 40 MG, DAILY (1/D)
  15. ZYPREXA [Suspect]
     Indication: DEPRESSION
     Dosage: 15 MG, DAILY (1/D)
     Route: 048
     Dates: start: 19971101

REACTIONS (8)
  - BLOOD GLUCOSE INCREASED [None]
  - CORONARY ARTERY DISEASE [None]
  - DIABETES MELLITUS NON-INSULIN-DEPENDENT [None]
  - ERECTILE DYSFUNCTION [None]
  - HAEMATOCRIT DECREASED [None]
  - HAEMOGLOBIN DECREASED [None]
  - HYPERLIPIDAEMIA [None]
  - RESPIRATORY TRACT INFECTION BACTERIAL [None]
